FAERS Safety Report 8199127-0 (Version None)
Quarter: 2012Q1

REPORT INFORMATION
  Report Type: 
  Country: None (occurrence: None)
  Receive Date: 20120309
  Receipt Date: 20120229
  Transmission Date: 20120608
  Serious: Yes (Hospitalization)
  Sender: FDA-Public Use
  Company Number: CA-ROCHE-GNE321650

PATIENT
  Sex: Male

DRUGS (2)
  1. RANIBIZUMAB [Suspect]
     Indication: DIABETIC RETINAL OEDEMA
     Dosage: UNK
     Route: 050
     Dates: start: 20090108, end: 20090408
  2. RANIBIZUMAB [Suspect]
     Dosage: UNK
     Route: 050
     Dates: start: 20110707

REACTIONS (2)
  - CONCOMITANT DISEASE PROGRESSION [None]
  - SYNCOPE [None]
